FAERS Safety Report 8398575-3 (Version None)
Quarter: 2012Q2

REPORT INFORMATION
  Report Type: 
  Country: None (occurrence: None)
  Receive Date: 20120531
  Receipt Date: 20120516
  Transmission Date: 20120825
  Serious: Yes (Other)
  Sender: FDA-Public Use
  Company Number: US-ROCHE-1064343

PATIENT
  Sex: Female
  Weight: 80.812 kg

DRUGS (12)
  1. OMEPRAZOLE [Concomitant]
     Indication: GASTROOESOPHAGEAL REFLUX DISEASE
     Dosage: EVERY MORNING
     Route: 048
  2. CARBOPLATIN [Concomitant]
     Indication: BREAST CANCER
     Route: 042
  3. NYSTATIN [Concomitant]
     Dosage: 100000/G
  4. DOCETAXEL [Concomitant]
     Indication: BREAST CANCER
     Route: 042
  5. DEXAMETHASONE [Concomitant]
  6. PROCHLORPERAZINE [Concomitant]
     Indication: NAUSEA
     Route: 048
  7. TRAZODONE HCL [Concomitant]
  8. CIPROFLOXACIN HCL [Concomitant]
     Route: 048
  9. HERCEPTIN [Suspect]
     Dates: start: 20120419
  10. HERCEPTIN [Suspect]
     Indication: BREAST CANCER
     Route: 042
     Dates: start: 20120308
  11. HERCEPTIN [Suspect]
     Dates: start: 20120329
  12. PAXIL [Concomitant]
     Indication: DEPRESSION
     Route: 048

REACTIONS (8)
  - VOMITING [None]
  - NAUSEA [None]
  - DIZZINESS [None]
  - CONSTIPATION [None]
  - FATIGUE [None]
  - WHITE BLOOD CELL COUNT DECREASED [None]
  - DEPRESSION [None]
  - ALOPECIA [None]
